FAERS Safety Report 4277402-X (Version None)
Quarter: 2004Q1

REPORT INFORMATION
  Report Type: 
  Country: None (occurrence: None)
  Receive Date: 20040122
  Receipt Date: 20031105
  Transmission Date: 20041129
  Serious: Yes (Other)
  Sender: FDA-Public Use
  Company Number: US-GLAXOSMITHKLINE-A0438799A

PATIENT
  Age: 29 Year
  Sex: Male
  Weight: 48.6 kg

DRUGS (2)
  1. WELLBUTRIN [Suspect]
     Indication: DEPRESSION
     Route: 048
     Dates: start: 20031014, end: 20031104
  2. MIRCETTE [Concomitant]

REACTIONS (4)
  - AMNESIA [None]
  - FALL [None]
  - GRAND MAL CONVULSION [None]
  - SKIN LACERATION [None]
